FAERS Safety Report 15190971 (Version 2)
Quarter: 2018Q4

REPORT INFORMATION
  Report Type: Report from Study
  Country: BE (occurrence: BE)
  Receive Date: 20180724
  Receipt Date: 20181004
  Transmission Date: 20190204
  Serious: Yes (Other)
  Sender: FDA-Public Use
  Company Number: BE-SAKK-2018SA157338AA

PATIENT
  Age: 33 Year
  Sex: Female
  Weight: 79 kg

DRUGS (4)
  1. BRUFEN [IBUPROFEN] [Concomitant]
     Indication: PREMEDICATION
  2. CORTISONE [Concomitant]
     Active Substance: CORTISONE\HYDROCORTISONE
  3. ZYRTEC [Concomitant]
     Active Substance: CETIRIZINE HYDROCHLORIDE
     Indication: PREMEDICATION
  4. ALGLUCOSIDASE ALFA [Suspect]
     Active Substance: ALGLUCOSIDASE ALFA
     Indication: GLYCOGEN STORAGE DISEASE TYPE II
     Dosage: 20 MG/KG, QOW
     Route: 041
     Dates: start: 20160530

REACTIONS (1)
  - Facial pain [Recovered/Resolved]

NARRATIVE: CASE EVENT DATE: 20180515
